FAERS Safety Report 7131295-1 (Version None)
Quarter: 2010Q4

REPORT INFORMATION
  Report Type: 
  Country: None (occurrence: None)
  Receive Date: 20101201
  Receipt Date: 20101019
  Transmission Date: 20110411
  Serious: Yes (Hospitalization, Other)
  Sender: FDA-Public Use
  Company Number: US-BAXTER-2010BH005743

PATIENT
  Age: 39 Year
  Sex: Female
  Weight: 65 kg

DRUGS (72)
  1. HEPARIN SODIUM INJECTION [Suspect]
     Indication: HAEMODIALYSIS
     Route: 042
     Dates: start: 20080229, end: 20080229
  2. HEPARIN SODIUM INJECTION [Suspect]
     Indication: CATHETER PLACEMENT
     Route: 042
     Dates: start: 20080229, end: 20080229
  3. HEPARIN SODIUM INJECTION [Suspect]
     Indication: INTRAVENOUS CATHETER MANAGEMENT
     Route: 042
     Dates: start: 20080229, end: 20080229
  4. HEPARIN SODIUM INJECTION [Suspect]
     Route: 058
     Dates: start: 20080303, end: 20080303
  5. HEPARIN SODIUM INJECTION [Suspect]
     Route: 058
     Dates: start: 20080303, end: 20080303
  6. HEPARIN SODIUM INJECTION [Suspect]
     Route: 058
     Dates: start: 20080303, end: 20080303
  7. HEPARIN SODIUM INJECTION [Suspect]
     Route: 065
     Dates: start: 20080304, end: 20080304
  8. HEPARIN SODIUM INJECTION [Suspect]
     Route: 065
     Dates: start: 20080304, end: 20080304
  9. HEPARIN SODIUM INJECTION [Suspect]
     Route: 065
     Dates: start: 20080304, end: 20080304
  10. HEPARIN SODIUM INJECTION [Suspect]
     Route: 042
     Dates: start: 20071213, end: 20071213
  11. HEPARIN SODIUM INJECTION [Suspect]
     Route: 042
     Dates: start: 20071213, end: 20071213
  12. HEPARIN SODIUM INJECTION [Suspect]
     Route: 042
     Dates: start: 20071213, end: 20071213
  13. HEPARIN SODIUM INJECTION [Suspect]
     Route: 042
     Dates: start: 20080313, end: 20080318
  14. HEPARIN SODIUM INJECTION [Suspect]
     Route: 042
     Dates: start: 20080313, end: 20080318
  15. HEPARIN SODIUM INJECTION [Suspect]
     Route: 042
     Dates: start: 20080313, end: 20080318
  16. HEPARIN SODIUM INJECTION [Suspect]
     Route: 065
     Dates: start: 20080311, end: 20080311
  17. HEPARIN SODIUM INJECTION [Suspect]
     Route: 065
     Dates: start: 20080311, end: 20080311
  18. HEPARIN SODIUM INJECTION [Suspect]
     Route: 065
     Dates: start: 20080311, end: 20080311
  19. HEPARIN SODIUM INJECTION [Suspect]
     Route: 042
     Dates: start: 20080304, end: 20080311
  20. HEPARIN SODIUM INJECTION [Suspect]
     Route: 042
     Dates: start: 20080304, end: 20080311
  21. HEPARIN SODIUM INJECTION [Suspect]
     Route: 042
     Dates: start: 20080304, end: 20080311
  22. HEPARIN SODIUM INJECTION [Suspect]
     Route: 042
     Dates: start: 20071213, end: 20071213
  23. HEPARIN SODIUM INJECTION [Suspect]
     Route: 042
     Dates: start: 20071213, end: 20071213
  24. HEPARIN SODIUM INJECTION [Suspect]
     Route: 042
     Dates: start: 20071213, end: 20071213
  25. HEPARIN SODIUM INJECTION [Suspect]
     Route: 042
     Dates: start: 20080303, end: 20080318
  26. HEPARIN SODIUM INJECTION [Suspect]
     Route: 042
     Dates: start: 20080303, end: 20080318
  27. HEPARIN SODIUM INJECTION [Suspect]
     Route: 042
     Dates: start: 20080303, end: 20080318
  28. HEPARIN SODIUM INJECTION [Suspect]
     Route: 042
     Dates: start: 20080410, end: 20080419
  29. HEPARIN SODIUM INJECTION [Suspect]
     Route: 042
     Dates: start: 20080410, end: 20080419
  30. HEPARIN SODIUM INJECTION [Suspect]
     Route: 042
     Dates: start: 20080410, end: 20080419
  31. HEPARIN SODIUM INJECTION [Suspect]
     Route: 058
     Dates: start: 20080303, end: 20080305
  32. HEPARIN SODIUM INJECTION [Suspect]
     Route: 058
     Dates: start: 20080303, end: 20080305
  33. HEPARIN SODIUM INJECTION [Suspect]
     Route: 058
     Dates: start: 20080303, end: 20080305
  34. HEPARIN SODIUM INJECTION [Suspect]
     Route: 042
     Dates: start: 20080306, end: 20080306
  35. HEPARIN SODIUM INJECTION [Suspect]
     Route: 042
     Dates: start: 20080306, end: 20080306
  36. HEPARIN SODIUM INJECTION [Suspect]
     Route: 042
     Dates: start: 20080306, end: 20080306
  37. HEPARIN SODIUM INJECTION [Suspect]
     Route: 042
     Dates: start: 20080307, end: 20080307
  38. HEPARIN SODIUM INJECTION [Suspect]
     Route: 042
     Dates: start: 20080307, end: 20080307
  39. HEPARIN SODIUM INJECTION [Suspect]
     Route: 042
     Dates: start: 20080307, end: 20080307
  40. HEPARIN SODIUM INJECTION [Suspect]
     Route: 042
     Dates: start: 20080312, end: 20080312
  41. HEPARIN SODIUM INJECTION [Suspect]
     Route: 042
     Dates: start: 20080312, end: 20080312
  42. HEPARIN SODIUM INJECTION [Suspect]
     Route: 042
     Dates: start: 20080312, end: 20080312
  43. HEPARIN SODIUM INJECTION [Suspect]
     Route: 042
     Dates: start: 20080409, end: 20080419
  44. HEPARIN SODIUM INJECTION [Suspect]
     Route: 042
     Dates: start: 20080409, end: 20080419
  45. HEPARIN SODIUM INJECTION [Suspect]
     Route: 042
     Dates: start: 20080409, end: 20080419
  46. HEPARIN SODIUM INJECTION [Suspect]
     Route: 042
     Dates: start: 20080229, end: 20080229
  47. HEPARIN SODIUM INJECTION [Suspect]
     Route: 042
     Dates: start: 20080229, end: 20080229
  48. HEPARIN SODIUM INJECTION [Suspect]
     Route: 042
     Dates: start: 20080229, end: 20080229
  49. HEPARIN SODIUM INJECTION [Suspect]
     Route: 042
     Dates: start: 20080313, end: 20080313
  50. HEPARIN SODIUM INJECTION [Suspect]
     Route: 042
     Dates: start: 20080313, end: 20080313
  51. HEPARIN SODIUM INJECTION [Suspect]
     Route: 042
     Dates: start: 20080313, end: 20080313
  52. HEPARIN SODIUM 5,000 UNITS IN DEXTROSE 5% [Suspect]
     Indication: PRODUCT USED FOR UNKNOWN INDICATION
     Route: 041
     Dates: start: 20080311, end: 20080311
  53. ASPIRIN [Concomitant]
     Indication: PRODUCT USED FOR UNKNOWN INDICATION
     Route: 065
  54. PLAVIX [Concomitant]
     Indication: PRODUCT USED FOR UNKNOWN INDICATION
     Route: 065
  55. EPOGEN [Concomitant]
     Indication: PRODUCT USED FOR UNKNOWN INDICATION
     Route: 065
  56. LISINOPRIL [Concomitant]
     Indication: PRODUCT USED FOR UNKNOWN INDICATION
     Route: 065
  57. METOPROLOL [Concomitant]
     Indication: PRODUCT USED FOR UNKNOWN INDICATION
     Route: 065
  58. MIRTAZAPINE [Concomitant]
     Indication: PRODUCT USED FOR UNKNOWN INDICATION
     Route: 065
  59. AVELOX [Concomitant]
     Indication: PRODUCT USED FOR UNKNOWN INDICATION
     Route: 065
  60. SIMVASTATIN [Concomitant]
     Indication: PRODUCT USED FOR UNKNOWN INDICATION
     Route: 065
  61. PEPCID [Concomitant]
     Indication: PRODUCT USED FOR UNKNOWN INDICATION
     Route: 065
  62. LABETALOL HCL [Concomitant]
     Indication: PRODUCT USED FOR UNKNOWN INDICATION
     Route: 065
  63. NORCO [Concomitant]
     Indication: PRODUCT USED FOR UNKNOWN INDICATION
     Route: 048
  64. RENAGEL [Concomitant]
     Indication: PRODUCT USED FOR UNKNOWN INDICATION
     Route: 065
  65. DESMOPRESSIN [Concomitant]
     Indication: PRODUCT USED FOR UNKNOWN INDICATION
     Route: 065
  66. NIFEDIPINE [Concomitant]
     Indication: PRODUCT USED FOR UNKNOWN INDICATION
     Route: 065
  67. ACTIVASE ^ROCHE^ [Concomitant]
     Indication: PRODUCT USED FOR UNKNOWN INDICATION
     Route: 065
  68. HYDROMORPHONE HCL [Concomitant]
     Indication: PRODUCT USED FOR UNKNOWN INDICATION
     Route: 065
  69. CEFAZOLIN [Concomitant]
     Indication: PRODUCT USED FOR UNKNOWN INDICATION
     Route: 065
  70. PAPAVERINE [Concomitant]
     Indication: PRODUCT USED FOR UNKNOWN INDICATION
     Route: 065
  71. ESZOPICLONE [Concomitant]
     Indication: PRODUCT USED FOR UNKNOWN INDICATION
     Route: 065
  72. HYDRALAZINE HCL 25MG TAB [Concomitant]
     Indication: PRODUCT USED FOR UNKNOWN INDICATION
     Route: 065

REACTIONS (24)
  - ANAEMIA [None]
  - ANXIETY [None]
  - AZOTAEMIA [None]
  - DIZZINESS [None]
  - DYSPNOEA [None]
  - FEELING HOT [None]
  - HAEMATOMA [None]
  - HAEMORRHAGIC DIATHESIS [None]
  - HEPARIN-INDUCED THROMBOCYTOPENIA [None]
  - HYPERKALAEMIA [None]
  - HYPOAESTHESIA [None]
  - HYPOTENSION [None]
  - HYPOVOLAEMIA [None]
  - MOTOR DYSFUNCTION [None]
  - NECROSIS [None]
  - OEDEMA PERIPHERAL [None]
  - PAIN [None]
  - PLATELET DISORDER [None]
  - SCAR [None]
  - VASCULAR GRAFT COMPLICATION [None]
  - VASCULAR GRAFT OCCLUSION [None]
  - VASCULITIS [None]
  - VENOUS STENOSIS [None]
  - WOUND DEHISCENCE [None]
